FAERS Safety Report 6353540-2 (Version None)
Quarter: 2009Q3

REPORT INFORMATION
  Report Type: 
  Country: None (occurrence: None)
  Receive Date: 20090912
  Receipt Date: 20090622
  Transmission Date: 20100115
  Serious: No
  Sender: FDA-Public Use
  Company Number: US-ABBOTT-08P-163-0461616-00

PATIENT
  Sex: Female
  Weight: 90.8 kg

DRUGS (9)
  1. HUMIRA [Suspect]
     Indication: RHEUMATOID ARTHRITIS
     Route: 058
     Dates: start: 20080409
  2. INSULIN PUMP [Concomitant]
     Indication: TYPE 1 DIABETES MELLITUS
     Dosage: 1 UNIT HOURLY, WITH BOLUS DOSES
     Route: 058
     Dates: start: 20050601
  3. METHOTREXATE [Concomitant]
     Indication: RHEUMATOID ARTHRITIS
     Route: 050
     Dates: start: 20080409
  4. ESTROGENS CONJUGATED [Concomitant]
     Indication: HYSTERECTOMY
     Route: 048
     Dates: start: 19830101
  5. LEVOTHYROXINE SODIUM [Concomitant]
     Indication: HYPOTHYROIDISM
     Route: 048
  6. SIMVASTATIN [Concomitant]
     Indication: BLOOD CHOLESTEROL INCREASED
     Route: 048
     Dates: start: 19960101
  7. FOLIC ACID [Concomitant]
     Indication: VITAMIN SUPPLEMENTATION
     Route: 048
     Dates: start: 20080409
  8. LOSARTAN POTASSIUM [Concomitant]
     Indication: HYPERTENSION
     Route: 048
  9. DULOXETINE HYDROCHLORIDE [Concomitant]
     Indication: DEPRESSION
     Route: 048
     Dates: start: 20071101

REACTIONS (6)
  - ACCIDENTAL NEEDLE STICK [None]
  - CONTUSION [None]
  - DRUG INEFFECTIVE [None]
  - INFLAMMATION [None]
  - JOINT STIFFNESS [None]
  - JOINT SWELLING [None]
